FAERS Safety Report 5788717-8 (Version None)
Quarter: 2008Q2

REPORT INFORMATION
  Report Type: 
  Country: None (occurrence: None)
  Receive Date: 20080624
  Receipt Date: 20080611
  Transmission Date: 20081010
  Serious: Yes (Death)
  Sender: FDA-Public Use
  Company Number: S08-UKI-02136-01

PATIENT
  Age: 34 Year
  Sex: Female

DRUGS (12)
  1. CITALOPRAM HYDROBROMIDE [Suspect]
     Dates: start: 20060414, end: 20060414
  2. CITALOPRAM HYDROBROMIDE [Suspect]
  3. CLOZAPINE [Suspect]
     Dates: start: 20060414, end: 20060414
  4. CLOZAPINE [Suspect]
     Dates: start: 20051013
  5. COMBIVENT [Suspect]
     Dates: start: 20060414, end: 20060414
  6. COMBIVENT [Suspect]
  7. LANSOPRAZOLE [Suspect]
     Dates: start: 20060414, end: 20060414
  8. LANSOPRAZOLE [Suspect]
  9. LEVOTHYROXINE SODIUM [Suspect]
     Indication: HYPOTHYROIDISM
     Dates: start: 20060414, end: 20060414
  10. LEVOTHYROXINE SODIUM [Suspect]
     Indication: HYPOTHYROIDISM
  11. THEOPHYLLINE [Suspect]
     Dates: start: 20060414, end: 20060414
  12. THEOPHYLLINE [Suspect]

REACTIONS (3)
  - DEPRESSED LEVEL OF CONSCIOUSNESS [None]
  - DRUG TOXICITY [None]
  - MULTIPLE DRUG OVERDOSE [None]
